FAERS Safety Report 12713671 (Version 1)
Quarter: 2016Q3

REPORT INFORMATION
  Report Type: Spontaneous
  Country: US (occurrence: US)
  Receive Date: 20160904
  Receipt Date: 20160904
  Transmission Date: 20161109
  Serious: Yes (Death, Hospitalization)
  Sender: FDA-Public Use
  Company Number: US-AUROBINDO-AUR-APL-2016-10949

PATIENT
  Age: 84 Year
  Sex: Male

DRUGS (3)
  1. FLUCONAZOLE. [Concomitant]
     Active Substance: FLUCONAZOLE
     Indication: PRODUCT USED FOR UNKNOWN INDICATION
     Route: 065
  2. PREDNISONE. [Suspect]
     Active Substance: PREDNISONE
     Indication: PRODUCT USED FOR UNKNOWN INDICATION
     Dosage: UNK, DAILY
     Route: 065
  3. VORICONAZOLE. [Concomitant]
     Active Substance: VORICONAZOLE
     Indication: PNEUMONIA CRYPTOCOCCAL
     Route: 065

REACTIONS (15)
  - Fall [Unknown]
  - Death [Fatal]
  - Cryptococcosis [Unknown]
  - Metastasis [Unknown]
  - Hypoxia [Unknown]
  - Tachycardia [Unknown]
  - Haematuria [Unknown]
  - Adenocarcinoma [Unknown]
  - Pleural effusion [Unknown]
  - Abdominal pain [Unknown]
  - Leukocytosis [Unknown]
  - Muscle spasms [Unknown]
  - Pyuria [Unknown]
  - Vomiting [Unknown]
  - Bowel movement irregularity [Unknown]
